FAERS Safety Report 19150749 (Version 1)
Quarter: 2021Q2

REPORT INFORMATION
  Report Type: Report from Study
  Country: None (occurrence: US)
  Receive Date: 20210419
  Receipt Date: 20210419
  Transmission Date: 20210717
  Serious: Yes (Other)
  Sender: FDA-Public Use
  Company Number: US-ABBVIE-20K-163-3535371-00

PATIENT
  Age: 21 Year
  Sex: Female

DRUGS (2)
  1. HUMIRA [Suspect]
     Active Substance: ADALIMUMAB
     Indication: CROHN^S DISEASE
     Route: 058
     Dates: start: 20200716, end: 2021
  2. HUMIRA [Suspect]
     Active Substance: ADALIMUMAB
     Route: 058
     Dates: start: 2021

REACTIONS (12)
  - Stress [Unknown]
  - Sinus congestion [Unknown]
  - Abdominal discomfort [Unknown]
  - Dizziness [Unknown]
  - Adverse food reaction [Unknown]
  - Allergy to animal [Recovering/Resolving]
  - Crohn^s disease [Recovered/Resolved]
  - Somnolence [Recovered/Resolved]
  - Intentional product misuse [Unknown]
  - Loss of personal independence in daily activities [Recovered/Resolved]
  - Therapeutic response shortened [Unknown]
  - Polyp [Unknown]

NARRATIVE: CASE EVENT DATE: 2020
